FAERS Safety Report 8649549 (Version 4)
Quarter: 2015Q1

REPORT INFORMATION
  Report Type: Report from Study
  Country: JP (occurrence: JP)
  Receive Date: 20120705
  Receipt Date: 20150114
  Transmission Date: 20150721
  Serious: Yes (Life-Threatening, Hospitalization)
  Sender: FDA-Public Use
  Company Number: PHHY2012JP057272

PATIENT
  Age: 61 Year
  Sex: Male

DRUGS (9)
  1. URSO [Concomitant]
     Active Substance: URSODIOL
     Indication: PROPHYLAXIS
     Dosage: 600 MG, UNK
     Route: 048
     Dates: start: 20100203
  2. GASMOTIN [Concomitant]
     Active Substance: MOSAPRIDE CITRATE
     Indication: NAUSEA
     Dosage: 15 MG, UNK
     Route: 048
     Dates: start: 20100430, end: 20100701
  3. DEPAS [Concomitant]
     Active Substance: ETIZOLAM
     Indication: DEPRESSION
     Dosage: 3 MG, UNK
     Route: 065
     Dates: start: 20100521, end: 20110313
  4. ROHYPNOL [Concomitant]
     Active Substance: FLUNITRAZEPAM
     Indication: DEPRESSION
     Dosage: 2 MG, UNK
     Route: 048
     Dates: start: 20100723, end: 20110313
  5. URSO [Concomitant]
     Active Substance: URSODIOL
     Dosage: 600 MG, UNK
     Route: 048
  6. TAKEPRON [Concomitant]
     Active Substance: LANSOPRAZOLE
     Indication: NAUSEA
     Dosage: 15 MG, UNK
     Route: 048
     Dates: start: 20100430, end: 20110313
  7. AMN107 [Suspect]
     Active Substance: NILOTINIB
     Indication: ACUTE LYMPHOCYTIC LEUKAEMIA
     Dosage: 800 MG, QD
     Route: 048
     Dates: start: 20100129, end: 20110314
  8. URSO [Concomitant]
     Active Substance: URSODIOL
     Dosage: 300 MG, UNK
     Route: 048
  9. MUCOSTA [Concomitant]
     Active Substance: REBAMIPIDE
     Indication: NAUSEA
     Dosage: 300 MG, UNK
     Route: 048
     Dates: start: 20091222, end: 20110313

REACTIONS (4)
  - White blood cell count increased [Unknown]
  - Malignant neoplasm progression [Unknown]
  - Product use issue [Unknown]
  - Platelet count decreased [Unknown]

NARRATIVE: CASE EVENT DATE: 20110314
